FAERS Safety Report 12558370 (Version 2)
Quarter: 2016Q4

REPORT INFORMATION
  Report Type: Report from Study
  Country: US (occurrence: US)
  Receive Date: 20160714
  Receipt Date: 20161109
  Transmission Date: 20170207
  Serious: No
  Sender: FDA-Public Use
  Company Number: PHEH2016US017273

PATIENT
  Age: 59 Year
  Sex: Female
  Weight: 81.63 kg

DRUGS (5)
  1. VITAMIN D [Concomitant]
     Active Substance: CHOLECALCIFEROL
     Indication: PRODUCT USED FOR UNKNOWN INDICATION
     Dosage: 6000 IU, QD
     Route: 065
  2. SOLU-MEDROL [Concomitant]
     Active Substance: METHYLPREDNISOLONE SODIUM SUCCINATE
     Indication: GAIT DISTURBANCE
     Dosage: 500 MG, QD
     Route: 042
  3. GILENYA [Suspect]
     Active Substance: FINGOLIMOD HYDROCHLORIDE
     Indication: MULTIPLE SCLEROSIS
     Dosage: 0.5 MG, QD
     Route: 048
     Dates: start: 20160314
  4. SOLU-MEDROL [Concomitant]
     Active Substance: METHYLPREDNISOLONE SODIUM SUCCINATE
     Indication: MUSCULAR WEAKNESS
     Dosage: 1000 MG, QD
     Route: 042
  5. CALCIUM [Concomitant]
     Active Substance: CALCIUM
     Indication: PRODUCT USED FOR UNKNOWN INDICATION
     Dosage: 600 MG, BID
     Route: 065

REACTIONS (9)
  - Arthralgia [Unknown]
  - Influenza like illness [Unknown]
  - Insomnia [Unknown]
  - Rash [Unknown]
  - Headache [Unknown]
  - Dry mouth [Unknown]
  - Dysgeusia [Unknown]
  - Myalgia [Unknown]
  - Alopecia [Unknown]

NARRATIVE: CASE EVENT DATE: 20160314
